FAERS Safety Report 8517902-7 (Version None)
Quarter: 2012Q3

REPORT INFORMATION
  Report Type: 
  Country: None (occurrence: None)
  Receive Date: 20120718
  Receipt Date: 20110812
  Transmission Date: 20120928
  Serious: No
  Sender: FDA-Public Use
  Company Number: US-BRISTOL-MYERS SQUIBB COMPANY-15890122

PATIENT
  Age: 84 Year
  Sex: Male
  Weight: 77 kg

DRUGS (6)
  1. COUMADIN [Suspect]
     Dosage: DURATION OF THERAPY:TWO OR THREE MONTHS ALSO 4MG
  2. PLAVIX [Suspect]
     Dosage: FILM COATED TAB
     Route: 048
     Dates: start: 20100101
  3. ATENOLOL [Concomitant]
  4. ASPIRIN [Concomitant]
  5. ZOCOR [Concomitant]
  6. NILVADIPINE [Concomitant]

REACTIONS (4)
  - URINARY INCONTINENCE [None]
  - PLATELET AGGREGATION DECREASED [None]
  - PROTHROMBIN LEVEL DECREASED [None]
  - BLADDER PAIN [None]
